FAERS Safety Report 6187245-8 (Version None)
Quarter: 2009Q2

REPORT INFORMATION
  Report Type: 
  Country: None (occurrence: None)
  Receive Date: 20090512
  Receipt Date: 20090508
  Transmission Date: 20091009
  Serious: Yes (Death, Other)
  Sender: FDA-Public Use
  Company Number: PHHY2009MX17759

PATIENT
  Age: 93 Year
  Sex: Female

DRUGS (5)
  1. ACLASTA [Suspect]
     Indication: OSTEOPOROSIS
     Dosage: 5 MG/100 ML
     Dates: start: 20080801
  2. ALUPENT [Concomitant]
     Dosage: UNK
  3. ASCRIPTIN A/D [Concomitant]
  4. IRIDIUS [Concomitant]
  5. RANTUDIL [Concomitant]
     Dosage: UNK

REACTIONS (4)
  - BEDRIDDEN [None]
  - HIP FRACTURE [None]
  - HYPOGLYCAEMIA [None]
  - MYOCARDIAL INFARCTION [None]
